FAERS Safety Report 8583844-4 (Version None)
Quarter: 2012Q3

REPORT INFORMATION
  Report Type: 
  Country: None (occurrence: None)
  Receive Date: 20120810
  Receipt Date: 20120731
  Transmission Date: 20120928
  Serious: Yes (Life-Threatening, Hospitalization, Other)
  Sender: FDA-Public Use
  Company Number: FR-009507513-1207FRA000229

PATIENT

DRUGS (6)
  1. IMOVANE [Concomitant]
     Dosage: 7.5 MG, UNK
     Dates: end: 20120630
  2. IRBESARTAN [Suspect]
     Indication: HYPERTENSION
     Dosage: 150 MG, QD
     Route: 048
     Dates: start: 20080101, end: 20120621
  3. METFORMIN HYDROCHLORIDE [Suspect]
     Indication: TYPE 2 DIABETES MELLITUS
     Dosage: 2 DF, QD
     Route: 048
     Dates: start: 20120215, end: 20120621
  4. SIMVASTATIN [Concomitant]
     Dosage: 20 MG, UNK
     Dates: start: 20050101, end: 20120621
  5. COTRIATEC [Suspect]
     Indication: HYPERTENSION
     Dosage: 1 DF, QD
     Route: 048
     Dates: start: 20080101, end: 20120621
  6. METFORMIN HYDROCHLORIDE [Suspect]
     Dosage: 1000 MG, QD
     Route: 048
     Dates: start: 19900101, end: 20120621

REACTIONS (5)
  - HYPERKALAEMIA [None]
  - LACTIC ACIDOSIS [None]
  - OVERDOSE [None]
  - RENAL FAILURE ACUTE [None]
  - CARDIAC ARREST [None]
